FAERS Safety Report 22090001 (Version 1)
Quarter: 2023Q1

REPORT INFORMATION
  Report Type: Spontaneous
  Country: US (occurrence: None)
  Receive Date: 20230313
  Receipt Date: 20230313
  Transmission Date: 20230418
  Serious: Yes (Death)
  Sender: FDA-Public Use
  Company Number: None

PATIENT
  Age: 83 Year
  Sex: Male
  Weight: 96.62 kg

DRUGS (10)
  1. CAPECITABINE [Suspect]
     Active Substance: CAPECITABINE
     Indication: Follicular lymphoma stage I
     Dosage: FREQUENCY : TWICE A DAY;?
     Route: 048
  2. ELIQUIS [Concomitant]
     Active Substance: APIXABAN
  3. CARVEDILOL [Concomitant]
     Active Substance: CARVEDILOL
  4. FUROSEMIDE [Concomitant]
     Active Substance: FUROSEMIDE
  5. ISOSORBIDE [Concomitant]
     Active Substance: ISOSORBIDE
  6. NICOTINE [Concomitant]
     Active Substance: NICOTINE
  7. OTASSIUM CHLORIDE ER [Concomitant]
  8. PRAVASTATIN [Concomitant]
     Active Substance: PRAVASTATIN
  9. SINEMET [Concomitant]
     Active Substance: CARBIDOPA\LEVODOPA
  10. TRELEGY ELLIPTA [Concomitant]
     Active Substance: FLUTICASONE FUROATE\UMECLIDINIUM BROMIDE\VILANTEROL TRIFENATATE

REACTIONS (1)
  - Death [None]

NARRATIVE: CASE EVENT DATE: 20230312
